FAERS Safety Report 22237490 (Version 1)
Quarter: 2023Q2

REPORT INFORMATION
  Report Type: Spontaneous
  Country: EC (occurrence: EC)
  Receive Date: 20230421
  Receipt Date: 20230421
  Transmission Date: 20230722
  Serious: Yes (Other)
  Sender: FDA-Public Use
  Company Number: EC-BoehringerIngelheim-2023-BI-232798

PATIENT

DRUGS (1)
  1. NINTEDANIB [Suspect]
     Active Substance: NINTEDANIB
     Indication: Product used for unknown indication
     Dates: start: 20230414

REACTIONS (2)
  - Respiratory failure [Unknown]
  - Cough [Unknown]

NARRATIVE: CASE EVENT DATE: 20230419
